FAERS Safety Report 24210107 (Version 5)
Quarter: 2025Q1

REPORT INFORMATION
  Report Type: Spontaneous
  Country: PA (occurrence: PA)
  Receive Date: 20240814
  Receipt Date: 20250116
  Transmission Date: 20250409
  Serious: No
  Sender: PFIZER
  Company Number: PA-PFIZER INC-PV202400101072

PATIENT
  Age: 11 Year
  Sex: Male

DRUGS (1)
  1. GENOTROPIN [Suspect]
     Active Substance: SOMATROPIN
     Dosage: 1.9 MG, 1X/DAY

REACTIONS (3)
  - Device malfunction [Unknown]
  - Device physical property issue [Unknown]
  - Device breakage [Unknown]

NARRATIVE: CASE EVENT DATE: 20240731
